FAERS Safety Report 6713318-4 (Version None)
Quarter: 2010Q2

REPORT INFORMATION
  Report Type: 
  Country: None (occurrence: None)
  Receive Date: 20100506
  Receipt Date: 20100426
  Transmission Date: 20101027
  Serious: Yes (Hospitalization)
  Sender: FDA-Public Use
  Company Number: FR-ROCHE-697730

PATIENT
  Age: 65 Year
  Sex: Male

DRUGS (1)
  1. ROACTEMRA [Suspect]
     Indication: RHEUMATOID ARTHRITIS
     Dosage: TAKEN MONTHLY
     Route: 042
     Dates: start: 20091201, end: 20100401

REACTIONS (1)
  - PERITONITIS [None]
